FAERS Safety Report 20367733 (Version 1)
Quarter: 2022Q1

REPORT INFORMATION
  Report Type: Spontaneous
  Country: ES (occurrence: ES)
  Receive Date: 20220124
  Receipt Date: 20220124
  Transmission Date: 20220423
  Serious: Yes (Hospitalization)
  Sender: FDA-Public Use
  Company Number: ES-ROCHE-3001926

PATIENT
  Sex: Female

DRUGS (3)
  1. CLONAZEPAM [Suspect]
     Active Substance: CLONAZEPAM
     Indication: Feeling of relaxation
     Dosage: UNK UNK, DAILY
     Route: 065
  2. COLCHICINE [Concomitant]
     Active Substance: COLCHICINE
     Indication: Cardiac disorder
     Dosage: UNK
     Route: 065
  3. ACETAMINOPHEN [Concomitant]
     Active Substance: ACETAMINOPHEN
     Dosage: UNK
     Route: 065

REACTIONS (5)
  - Asphyxia [Not Recovered/Not Resolved]
  - Lung disorder [Recovered/Resolved]
  - Cardiac disorder [Not Recovered/Not Resolved]
  - Insomnia [Unknown]
  - Chest pain [Not Recovered/Not Resolved]
